FAERS Safety Report 6960601-3 (Version None)
Quarter: 2010Q3

REPORT INFORMATION
  Report Type: 
  Country: None (occurrence: None)
  Receive Date: 20100901
  Receipt Date: 20100819
  Transmission Date: 20110219
  Serious: Yes (Hospitalization, Other)
  Sender: FDA-Public Use
  Company Number: US-ELI_LILLY_AND_COMPANY-US200911004437

PATIENT
  Sex: Female

DRUGS (13)
  1. FORTEO [Suspect]
     Indication: OSTEOPOROSIS
     Dosage: 20 UG, DAILY (1/D)
     Dates: start: 20091111
  2. FORTEO [Suspect]
     Dosage: 20 UG, DAILY (1/D)
  3. FORTEO [Suspect]
     Dosage: 20 UG, DAILY (1/D)
  4. PREDNISONE [Concomitant]
  5. THEOPHYLLINE [Concomitant]
  6. ALBUTEROL SULFATE [Concomitant]
  7. OMEPRAZOLE [Concomitant]
  8. PHENYTOIN SODIUM [Concomitant]
  9. PHENOBARBITAL [Concomitant]
  10. MUCINEX [Concomitant]
  11. CALCIUM W/VITAMIN D NOS [Concomitant]
  12. IMMUNE GLOBULIN NOS [Concomitant]
     Dosage: UNK, OTHER
     Route: 042
  13. PULMICORT [Concomitant]

REACTIONS (9)
  - ABDOMINAL DISTENSION [None]
  - BRONCHITIS CHRONIC [None]
  - MALAISE [None]
  - NAUSEA [None]
  - PANCREATITIS [None]
  - PNEUMONIA [None]
  - RECTAL HAEMORRHAGE [None]
  - THROMBOSIS [None]
  - TREMOR [None]
